FAERS Safety Report 8607743-4 (Version None)
Quarter: 2012Q3

REPORT INFORMATION
  Report Type: 
  Country: None (occurrence: None)
  Receive Date: 20120821
  Receipt Date: 20120810
  Transmission Date: 20120928
  Serious: Yes (Hospitalization, Other)
  Sender: FDA-Public Use
  Company Number: PHHY2011JP099304

PATIENT
  Sex: Male
  Weight: 78 kg

DRUGS (11)
  1. RED BLOOD CELLS, CONCENTRATED [Concomitant]
     Dosage: 2 U, UNK
  2. LASIX [Concomitant]
     Indication: HYPERTENSION
     Dosage: 20 MG, UNK
     Route: 048
     Dates: start: 20110304, end: 20110408
  3. RED BLOOD CELLS, CONCENTRATED [Concomitant]
     Dosage: 2 U, UNK
  4. ASPIRIN [Concomitant]
     Indication: ANGINA PECTORIS
     Dosage: 100 MG, UNK
     Route: 048
     Dates: start: 20011111
  5. IMATINIB MESYLATE [Suspect]
     Dosage: 200 MG DAILY
     Route: 048
     Dates: start: 20110621, end: 20111018
  6. LASIX [Concomitant]
     Dosage: 80 MG, UNK
     Route: 048
  7. AMLODIPINE BESYLATE [Concomitant]
     Indication: HYPERTENSION
     Dosage: 5 MG, UNK
     Route: 048
     Dates: start: 20011111
  8. ISOSORBIDE MONONITRATE [Concomitant]
     Indication: ANGINA PECTORIS
     Dosage: 40 MG, UNK
     Route: 048
     Dates: start: 20011111
  9. IMATINIB MESYLATE [Suspect]
     Indication: CHRONIC MYELOID LEUKAEMIA
     Dosage: 400 MG DAILY
     Route: 048
     Dates: start: 20050603, end: 20110415
  10. CANDESARTAN CILEXETIL [Concomitant]
     Indication: HYPERTENSION
     Dosage: 8 MG, UNK
     Route: 048
     Dates: start: 20011111
  11. MUCOSTA [Concomitant]
     Indication: GASTRITIS PROPHYLAXIS
     Dosage: 200 MG, UNK
     Route: 048
     Dates: start: 20011111

REACTIONS (41)
  - NEOPLASM MALIGNANT [None]
  - BONE MARROW FAILURE [None]
  - RENAL ATROPHY [None]
  - FLUID RETENTION [None]
  - ABDOMINAL DISTENSION [None]
  - EYELID OEDEMA [None]
  - BUNDLE BRANCH BLOCK RIGHT [None]
  - OCCULT BLOOD POSITIVE [None]
  - HAEMATEMESIS [None]
  - HIATUS HERNIA [None]
  - PLEURAL EFFUSION [None]
  - RENAL FAILURE CHRONIC [None]
  - DEHYDRATION [None]
  - OEDEMA PERIPHERAL [None]
  - PYREXIA [None]
  - HYPOGAMMAGLOBULINAEMIA [None]
  - HYPOTHYROIDISM [None]
  - HAEMOGLOBIN DECREASED [None]
  - PERICARDIAL EFFUSION [None]
  - DECREASED APPETITE [None]
  - PRURITUS [None]
  - RENAL FAILURE ACUTE [None]
  - ANAEMIA [None]
  - PIGMENTATION DISORDER [None]
  - GASTRITIS [None]
  - RENAL IMPAIRMENT [None]
  - BLOOD CREATININE INCREASED [None]
  - UPPER GASTROINTESTINAL HAEMORRHAGE [None]
  - HYPOALBUMINAEMIA [None]
  - PNEUMONIA [None]
  - NORMOCHROMIC NORMOCYTIC ANAEMIA [None]
  - ATRIAL FIBRILLATION [None]
  - EYE OEDEMA [None]
  - ASCITES [None]
  - GASTRIC CANCER STAGE II [None]
  - NEPHROGENIC ANAEMIA [None]
  - BLOOD PRESSURE DECREASED [None]
  - CARDIAC FAILURE [None]
  - COLONIC POLYP [None]
  - OEDEMA [None]
  - SKIN OEDEMA [None]
